FAERS Safety Report 4814777-4 (Version None)
Quarter: 2005Q4

REPORT INFORMATION
  Report Type: 
  Country: None (occurrence: None)
  Receive Date: 20051028
  Receipt Date: 20041228
  Transmission Date: 20060501
  Serious: No
  Sender: FDA-Public Use
  Company Number: US-GLAXOSMITHKLINE-A0538564A

PATIENT
  Age: 67 Year
  Sex: Male

DRUGS (6)
  1. ADVAIR DISKUS 100/50 [Suspect]
     Indication: CHRONIC OBSTRUCTIVE PULMONARY DISEASE
     Dosage: 1PUFF TWICE PER DAY
     Route: 055
  2. XOPENEX [Concomitant]
  3. LASIX [Concomitant]
  4. POTASSIUM [Concomitant]
  5. FLOMAX [Concomitant]
  6. COLCHICINE [Concomitant]

REACTIONS (1)
  - DRUG INEFFECTIVE [None]
